FAERS Safety Report 8584788-4 (Version None)
Quarter: 2012Q3

REPORT INFORMATION
  Report Type: 
  Country: None (occurrence: None)
  Receive Date: 20120810
  Receipt Date: 20120731
  Transmission Date: 20120928
  Serious: Yes (Other)
  Sender: FDA-Public Use
  Company Number: CA-JNJFOC-20120800772

PATIENT
  Sex: Female
  Weight: 130 kg

DRUGS (2)
  1. PREDNISONE TAB [Concomitant]
     Route: 065
  2. REMICADE [Suspect]
     Indication: CROHN'S DISEASE
     Route: 042
     Dates: start: 20101217, end: 20120613

REACTIONS (4)
  - EYE DISORDER [None]
  - VISUAL ACUITY REDUCED [None]
  - COLOUR BLINDNESS [None]
  - EYE PAIN [None]
